FAERS Safety Report 15783148 (Version 1)
Quarter: 2019Q1

REPORT INFORMATION
  Report Type: Spontaneous
  Country: CN (occurrence: CN)
  Receive Date: 20190102
  Receipt Date: 20190102
  Transmission Date: 20190417
  Serious: Yes (Life-Threatening, Other)
  Sender: FDA-Public Use
  Company Number: CN-BAUSCH-BL-2018-036118

PATIENT
  Age: 52 Year
  Sex: Female

DRUGS (5)
  1. DEXAMETHASONE. [Suspect]
     Active Substance: DEXAMETHASONE
     Indication: ACUTE LYMPHOCYTIC LEUKAEMIA RECURRENT
     Dosage: DAY PLUS 1 TO PLUS 7 AND PLUS 15 TO PLUS 21; CYCLICAL
     Route: 065
     Dates: start: 2017, end: 2017
  2. CYCLOPHOSPHAMIDE. [Suspect]
     Active Substance: CYCLOPHOSPHAMIDE
     Indication: ACUTE LYMPHOCYTIC LEUKAEMIA RECURRENT
     Dosage: DAY PLUS 1, PLUS 8 AND PLUS 15; CYCLICAL
     Route: 065
     Dates: start: 2017, end: 2017
  3. BORTEZOMIB. [Suspect]
     Active Substance: BORTEZOMIB
     Indication: ACUTE LYMPHOCYTIC LEUKAEMIA RECURRENT
     Dosage: DAY PLUS 1, PLUS 8 AND PLUS 15; CYCLICAL
     Route: 065
     Dates: start: 2017, end: 2017
  4. DAUNORUBICIN [Suspect]
     Active Substance: DAUNORUBICIN
     Indication: ACUTE LYMPHOCYTIC LEUKAEMIA RECURRENT
     Dosage: DAY PLUS 1, PLUS 8 AND PLUS 15; CYCLICAL
     Route: 065
     Dates: start: 2017, end: 2017
  5. VINCRISTINE [Suspect]
     Active Substance: VINCRISTINE
     Indication: ACUTE LYMPHOCYTIC LEUKAEMIA RECURRENT
     Dosage: DAY PLUS 1, PLUS 8, PLUS 15, AND PLUS 22; CYCLICAL
     Route: 065
     Dates: start: 2017, end: 2017

REACTIONS (1)
  - Drug ineffective [Recovered/Resolved]

NARRATIVE: CASE EVENT DATE: 2017
